FAERS Safety Report 21526898 (Version 1)
Quarter: 2022Q4

REPORT INFORMATION
  Report Type: Spontaneous
  Country: JP (occurrence: JP)
  Receive Date: 20221031
  Receipt Date: 20221031
  Transmission Date: 20230112
  Serious: Yes (Other)
  Sender: FDA-Public Use
  Company Number: JP-SUN PHARMACEUTICAL INDUSTRIES LTD-2022R1-361231

PATIENT
  Age: 69 Year
  Sex: Female

DRUGS (5)
  1. DOCETAXEL [Suspect]
     Active Substance: DOCETAXEL
     Indication: Cardiac disorder
     Dosage: UNK
     Route: 065
  2. DOXORUBICIN [Suspect]
     Active Substance: DOXORUBICIN
     Indication: Cardiac disorder
     Dosage: UNK
     Route: 065
  3. GEMCITABINE [Suspect]
     Active Substance: GEMCITABINE
     Indication: Cardiac disorder
     Dosage: UNK
     Route: 065
  4. PAZOPANIB [Suspect]
     Active Substance: PAZOPANIB
     Indication: Cardiac disorder
     Dosage: UNK
     Route: 065
  5. IFOSFAMIDE [Suspect]
     Active Substance: IFOSFAMIDE
     Indication: Cardiac disorder
     Dosage: UNK
     Route: 065

REACTIONS (1)
  - Disease progression [Unknown]
